FAERS Safety Report 6768816-4 (Version None)
Quarter: 2010Q2

REPORT INFORMATION
  Report Type: 
  Country: None (occurrence: None)
  Receive Date: 20100611
  Receipt Date: 20100601
  Transmission Date: 20101027
  Serious: Yes (Hospitalization, Other)
  Sender: FDA-Public Use
  Company Number: JHP201000179

PATIENT
  Age: 41 Year
  Sex: Female

DRUGS (1)
  1. EPINEPHRINE [Suspect]
     Indication: WRONG DRUG ADMINISTERED
     Dosage: 1:1000 SUBMUCCOSAL, INJECTION

REACTIONS (8)
  - HYPERTENSION [None]
  - HYPOXIA [None]
  - INCORRECT DOSE ADMINISTERED [None]
  - PROCEDURAL HYPERTENSION [None]
  - PULMONARY OEDEMA [None]
  - TACHYCARDIA [None]
  - TROPONIN INCREASED [None]
  - WRONG DRUG ADMINISTERED [None]
